FAERS Safety Report 16894867 (Version 1)
Quarter: 2019Q4

REPORT INFORMATION
  Report Type: Spontaneous
  Country: US (occurrence: US)
  Receive Date: 20191007
  Receipt Date: 20191007
  Transmission Date: 20200122
  Serious: Yes (Hospitalization)
  Sender: FDA-Public Use
  Company Number: None

PATIENT
  Age: 49 Year
  Sex: Male

DRUGS (10)
  1. VITAMIN B12 [Concomitant]
     Active Substance: CYANOCOBALAMIN
  2. METRONIDAZOL [Concomitant]
     Active Substance: METRONIDAZOLE
  3. PREDNISONE. [Concomitant]
     Active Substance: PREDNISONE
  4. STELARA [Suspect]
     Active Substance: USTEKINUMAB
     Indication: CROHN^S DISEASE
     Dosage: ?          OTHER FREQUENCY:Q6WKS;?
     Route: 058
     Dates: start: 20170913
  5. ONDANSETRON [Concomitant]
     Active Substance: ONDANSETRON
  6. CIPROFLOXACN [Concomitant]
     Active Substance: CIPROFLOXACIN
  7. DAILY MULTI [Concomitant]
  8. BUDESONIDE. [Concomitant]
     Active Substance: BUDESONIDE
  9. OMEPRAZOLE. [Concomitant]
     Active Substance: OMEPRAZOLE
  10. AZATHOPRINE [Concomitant]
     Active Substance: AZATHIOPRINE

REACTIONS (5)
  - Vomiting [None]
  - Diarrhoea [None]
  - Nausea [None]
  - Gastrointestinal infection [None]
  - Pain [None]

NARRATIVE: CASE EVENT DATE: 20190919
